FAERS Safety Report 5450950-2 (Version None)
Quarter: 2007Q3

REPORT INFORMATION
  Report Type: 
  Country: None (occurrence: None)
  Receive Date: 20070911
  Receipt Date: 20070911
  Transmission Date: 20080115
  Serious: Yes (Death)
  Sender: FDA-Public Use
  Company Number: None

PATIENT
  Age: 75 Year
  Sex: Female

DRUGS (1)
  1. FLOLAN [Suspect]
     Indication: PULMONARY HYPERTENSION
     Dates: start: 20070501, end: 20070509

REACTIONS (6)
  - CATHETER RELATED COMPLICATION [None]
  - HYPOTENSION [None]
  - LOSS OF CONSCIOUSNESS [None]
  - MEDICATION ERROR [None]
  - OXYGEN SATURATION DECREASED [None]
  - PULMONARY HYPERTENSION [None]
